FAERS Safety Report 8902389 (Version 5)
Quarter: 2013Q2

REPORT INFORMATION
  Report Type: Spontaneous
  Country: JP (occurrence: JP)
  Receive Date: 20121112
  Receipt Date: 20130529
  Transmission Date: 20140414
  Serious: Yes (Other)
  Sender: FDA-Public Use
  Company Number: JP-PFIZER INC-2012280350

PATIENT
  Age: 69 Year
  Sex: Female
  Weight: 51 kg

DRUGS (15)
  1. LYRICA [Suspect]
     Indication: PAIN IN EXTREMITY
     Dosage: 25 MG, 2X/DAY
     Route: 048
     Dates: start: 20110412, end: 20110421
  2. LYRICA [Suspect]
     Indication: NEURALGIA
     Dosage: 75 MG, 1X/DAY
     Route: 048
     Dates: start: 20110422, end: 20110512
  3. LYRICA [Suspect]
     Dosage: 75 MG, 2X/DAY
     Route: 048
     Dates: start: 20110513, end: 20120412
  4. LYRICA [Suspect]
     Dosage: 100 MG, 1X/DAY
     Route: 048
     Dates: start: 20120413, end: 20120510
  5. LYRICA [Suspect]
     Dosage: 75 MG, 2X/DAY
     Route: 048
     Dates: start: 20120511, end: 20121108
  6. ACECOL [Concomitant]
     Dosage: UNK
  7. BLOPRESS [Concomitant]
     Dosage: 2 MG, UNK
     Route: 048
  8. LIVALO [Concomitant]
     Dosage: 1 MG, UNK
     Route: 048
     Dates: end: 20130107
  9. METHYCOBAL [Concomitant]
     Dosage: 1500 UG, UNK
     Route: 048
  10. TAIPROTON [Concomitant]
     Dosage: 15 MG, UNK
     Route: 048
  11. LOXONIN [Concomitant]
  12. MAGMITT [Concomitant]
     Dosage: 1500 MG, UNK
     Route: 048
  13. SODIUM BICARBONATE [Concomitant]
  14. REPLAS 3 [Concomitant]
  15. NEOLAMIN [Concomitant]

REACTIONS (1)
  - Interstitial lung disease [Recovered/Resolved]
